FAERS Safety Report 5136947-0 (Version None)
Quarter: 2006Q4

REPORT INFORMATION
  Report Type: 
  Country: None (occurrence: None)
  Receive Date: 20061023
  Receipt Date: 20060814
  Transmission Date: 20070319
  Serious: Yes (Other)
  Sender: FDA-Public Use
  Company Number: CHNY2004AU02940

PATIENT
  Age: 39 Year
  Sex: Female

DRUGS (1)
  1. AMCAL [Suspect]
     Indication: SMOKING CESSATION THERAPY
     Dosage: 21 MG, TRANSDERMAL
     Route: 062

REACTIONS (1)
  - FACIAL PALSY [None]
